FAERS Safety Report 23472387 (Version 5)
Quarter: 2024Q3

REPORT INFORMATION
  Report Type: Spontaneous
  Country: US (occurrence: US)
  Receive Date: 20240202
  Receipt Date: 20240904
  Transmission Date: 20241017
  Serious: No
  Sender: BRISTOL MYERS SQUIBB
  Company Number: US-BRISTOL-MYERS SQUIBB COMPANY-2024-016444

PATIENT
  Age: 47 Year
  Sex: Male

DRUGS (3)
  1. SPRYCEL [Suspect]
     Active Substance: DASATINIB
     Indication: Benign bone neoplasm
     Route: 048
     Dates: start: 202401
  2. SPRYCEL [Suspect]
     Active Substance: DASATINIB
     Route: 048
     Dates: start: 202401
  3. SPRYCEL [Suspect]
     Active Substance: DASATINIB
     Route: 048
     Dates: start: 202401

REACTIONS (9)
  - Fatigue [Unknown]
  - Fluid retention [Unknown]
  - Joint stiffness [Unknown]
  - Headache [Unknown]
  - Off label use [Unknown]
  - Inflammation [Unknown]
  - Asthenia [Unknown]
  - Vision blurred [Unknown]
  - Rash [Unknown]
